FAERS Safety Report 9975303 (Version 1)
Quarter: 2014Q1

REPORT INFORMATION
  Report Type: Report from Study
  Country: US (occurrence: US)
  Receive Date: 20140306
  Receipt Date: 20140306
  Transmission Date: 20141002
  Serious: No
  Sender: FDA-Public Use
  Company Number: US-ABBVIE-13P-163-1159609-00

PATIENT
  Age: 47 Year
  Sex: Male
  Weight: 114.41 kg

DRUGS (6)
  1. HUMIRA [Suspect]
     Indication: RHEUMATOID ARTHRITIS
     Route: 058
     Dates: start: 200908, end: 201306
  2. HUMIRA [Suspect]
     Route: 058
     Dates: start: 201310
  3. ENALAPRIL [Concomitant]
     Indication: HYPERTENSION
  4. METFORMIN [Concomitant]
     Indication: DIABETES MELLITUS
  5. LEVEMIR [Concomitant]
     Indication: DIABETES MELLITUS
  6. NOVOLOG [Concomitant]
     Indication: DIABETES MELLITUS

REACTIONS (4)
  - Dysuria [Recovering/Resolving]
  - Urine flow decreased [Unknown]
  - Abdominal distension [Recovering/Resolving]
  - Prostate infection [Recovering/Resolving]
